FAERS Safety Report 8006943-4 (Version None)
Quarter: 2011Q4

REPORT INFORMATION
  Report Type: 
  Country: None (occurrence: None)
  Receive Date: 20111227
  Receipt Date: 20111216
  Transmission Date: 20120403
  Serious: Yes (Hospitalization)
  Sender: FDA-Public Use
  Company Number: US-BAYER-2011-049765

PATIENT
  Age: 47 Year
  Sex: Female
  Weight: 63 kg

DRUGS (12)
  1. ACETAMINOPHEN [Concomitant]
  2. SYMBICORT [Concomitant]
  3. YASMIN [Suspect]
     Indication: PREMENSTRUAL SYNDROME
  4. YAZ [Suspect]
     Indication: AMENORRHOEA
  5. ALPRAZOLAM [Concomitant]
     Indication: ANXIETY
  6. SINGULAIR [Concomitant]
  7. YASMIN [Suspect]
     Indication: CONTRACEPTION
     Dosage: UNK
     Dates: start: 20061010, end: 20080211
  8. YASMIN [Suspect]
     Indication: AMENORRHOEA
  9. YAZ [Suspect]
     Indication: CONTRACEPTION
     Dosage: UNK
     Dates: start: 20081017, end: 20090306
  10. YAZ [Suspect]
     Indication: PREMENSTRUAL SYNDROME
     Dosage: UNK
     Dates: start: 20090324, end: 20090508
  11. IBUPROFEN (ADVIL) [Concomitant]
  12. VENTOLIN [Concomitant]

REACTIONS (8)
  - DYSPNOEA [None]
  - CHEST PAIN [None]
  - SPLENIC ARTERY ANEURYSM [None]
  - PELVIC VENOUS THROMBOSIS [None]
  - BILIARY DYSKINESIA [None]
  - PULMONARY EMBOLISM [None]
  - PALPITATIONS [None]
  - ABDOMINAL PAIN [None]
